FAERS Safety Report 16270885 (Version 4)
Quarter: 2020Q3

REPORT INFORMATION
  Report Type: Spontaneous
  Country: US (occurrence: US)
  Receive Date: 20190503
  Receipt Date: 20200820
  Transmission Date: 20201102
  Serious: Yes (Other)
  Sender: FDA-Public Use
  Company Number: US-GILEAD-2019-0405388

PATIENT
  Age: 25 Year
  Sex: Male
  Weight: 61.22 kg

DRUGS (14)
  1. ASPIRIN (E.C.) [Concomitant]
     Active Substance: ASPIRIN
  2. OMEPRAZOLE. [Concomitant]
     Active Substance: OMEPRAZOLE
  3. ACETAMINOPHEN. [Concomitant]
     Active Substance: ACETAMINOPHEN
  4. VITAMIN D 2000 [Concomitant]
     Active Substance: VITAMIN D NOS
  5. AMOXICILLIN. [Concomitant]
     Active Substance: AMOXICILLIN
  6. CORTISONE [Concomitant]
     Active Substance: CORTISONE
  7. AZITHROMYCIN ANHYDROUS. [Concomitant]
     Active Substance: AZITHROMYCIN ANHYDROUS
  8. CEFTRIAXONE. [Concomitant]
     Active Substance: CEFTRIAXONE
  9. ANUSOL HC [Concomitant]
     Active Substance: HYDROCORTISONE
  10. TRIUMEQ [Concomitant]
     Active Substance: ABACAVIR SULFATE\DOLUTEGRAVIR SODIUM\LAMIVUDINE
  11. BACTRIM [Concomitant]
     Active Substance: SULFAMETHOXAZOLE\TRIMETHOPRIM
  12. LORATADINE. [Concomitant]
     Active Substance: LORATADINE
  13. STRIBILD [Suspect]
     Active Substance: COBICISTAT\ELVITEGRAVIR\EMTRICITABINE\TENOFOVIR DISOPROXIL FUMARATE
     Indication: HIV INFECTION
     Dosage: UNK
     Route: 048
     Dates: start: 201411, end: 201610
  14. PENICILLIN B [Concomitant]
     Active Substance: PHENETICILLIN

REACTIONS (10)
  - Fracture [Recovering/Resolving]
  - Depression [Recovered/Resolved]
  - Tibia fracture [Unknown]
  - Asthenia [Not Recovered/Not Resolved]
  - Emotional distress [Recovered/Resolved]
  - Anhedonia [Unknown]
  - Economic problem [Unknown]
  - Pain [Unknown]
  - Anxiety [Recovered/Resolved]
  - Fibula fracture [Unknown]

NARRATIVE: CASE EVENT DATE: 201506
